FAERS Safety Report 10498251 (Version 1)
Quarter: 2014Q3

REPORT INFORMATION
  Report Type: Spontaneous
  Country: US (occurrence: None)
  Receive Date: 20140815
  Receipt Date: 20140815
  Transmission Date: 20150326
  Serious: Yes (Life-Threatening, Hospitalization, Other)
  Sender: FDA-Public Use
  Company Number: ADR-2014-00448

PATIENT
  Age: 53 Year
  Sex: Female
  Weight: 53.07 kg

DRUGS (1)
  1. COMPOUNDED BACLOFEN [Suspect]
     Active Substance: BACLOFEN
     Indication: MUSCLE SPASTICITY

REACTIONS (4)
  - Pneumonia [None]
  - Implant site erosion [None]
  - Blood culture positive [None]
  - Wound dehiscence [None]

NARRATIVE: CASE EVENT DATE: 20140317
